FAERS Safety Report 12632810 (Version 2)
Quarter: 2016Q3

REPORT INFORMATION
  Report Type: Spontaneous
  Country: US (occurrence: US)
  Receive Date: 20160808
  Receipt Date: 20160808
  Transmission Date: 20161109
  Serious: No
  Sender: FDA-Public Use
  Company Number: US-BEH-2015057042

PATIENT
  Sex: Female
  Weight: 128 kg

DRUGS (31)
  1. DIPHENHYDRAMINE. [Concomitant]
     Active Substance: DIPHENHYDRAMINE
  2. VALIUM [Concomitant]
     Active Substance: DIAZEPAM
  3. ASPIRIN. [Concomitant]
     Active Substance: ASPIRIN
  4. CIPROFLOXACIN. [Concomitant]
     Active Substance: CIPROFLOXACIN
  5. BUSPIRONE [Concomitant]
     Active Substance: BUSPIRONE HYDROCHLORIDE
  6. FENOFIBRATE. [Concomitant]
     Active Substance: FENOFIBRATE
  7. JOINT SUPPORT FORMULA [Concomitant]
  8. OXYGEN. [Concomitant]
     Active Substance: OXYGEN
  9. PROVENTIL [Concomitant]
     Active Substance: ALBUTEROL
  10. LEVEMIR [Concomitant]
     Active Substance: INSULIN DETEMIR
  11. ALEVE [Concomitant]
     Active Substance: NAPROXEN SODIUM
  12. VICODIN [Concomitant]
     Active Substance: ACETAMINOPHEN\HYDROCODONE BITARTRATE
  13. IPRAT-ALBUT [Concomitant]
  14. GLIMEPIRIDE. [Concomitant]
     Active Substance: GLIMEPIRIDE
  15. NOVOLOG [Concomitant]
     Active Substance: INSULIN ASPART
  16. MULTIVITAMINS [Concomitant]
     Active Substance: VITAMINS
  17. HIZENTRA [Suspect]
     Active Substance: HUMAN IMMUNOGLOBULIN G
     Indication: RHINITIS ALLERGIC
     Route: 058
  18. LIDOCAINE/PRILOCAINE [Concomitant]
     Active Substance: LIDOCAINE\PRILOCAINE
  19. MEDROL [Concomitant]
     Active Substance: METHYLPREDNISOLONE
  20. OMEPRAZOLE. [Concomitant]
     Active Substance: OMEPRAZOLE
  21. HIZENTRA [Suspect]
     Active Substance: HUMAN IMMUNOGLOBULIN G
     Indication: IMMUNODEFICIENCY COMMON VARIABLE
     Route: 058
  22. VITAMIN C [Concomitant]
     Active Substance: ASCORBIC ACID
  23. BENZONATATE. [Concomitant]
     Active Substance: BENZONATATE
  24. LEVAQUIN [Concomitant]
     Active Substance: LEVOFLOXACIN
  25. PENICILLIN [Concomitant]
     Active Substance: PENICILLIN
  26. ACETAMINOPHEN. [Concomitant]
     Active Substance: ACETAMINOPHEN
  27. SINGULAIR [Concomitant]
     Active Substance: MONTELUKAST SODIUM
  28. NORVASC [Concomitant]
     Active Substance: AMLODIPINE BESYLATE
  29. CRESTOR [Concomitant]
     Active Substance: ROSUVASTATIN CALCIUM
  30. HIZENTRA [Suspect]
     Active Substance: HUMAN IMMUNOGLOBULIN G
     Indication: STATUS ASTHMATICUS
     Route: 058
  31. EPIPEN [Concomitant]
     Active Substance: EPINEPHRINE

REACTIONS (1)
  - Nasopharyngitis [Unknown]
